FAERS Safety Report 6085583-0 (Version None)
Quarter: 2009Q1

REPORT INFORMATION
  Report Type: 
  Country: None (occurrence: None)
  Receive Date: 20090217
  Receipt Date: 19931001
  Transmission Date: 20090719
  Serious: Yes (Death)
  Sender: FDA-Public Use
  Company Number: 26696

PATIENT
  Age: 70 Year
  Sex: Male

DRUGS (5)
  1. TORADOL [Suspect]
     Indication: POST HERPETIC NEURALGIA
     Dosage: 40 MG 4 PER DAY ORAL
     Route: 048
     Dates: start: 19930922, end: 19930929
  2. ISMELIN (GUANETHIDINE MONOSULFATE) [Concomitant]
  3. . [Concomitant]
  4. VICODIN (HYDROCODONE BITARTRATE/PARACETEMOL [Concomitant]
  5. . [Concomitant]

REACTIONS (3)
  - DEATH [None]
  - DRUG INEFFECTIVE [None]
  - WHEEZING [None]
